FAERS Safety Report 8468481-4 (Version None)
Quarter: 2012Q2

REPORT INFORMATION
  Report Type: 
  Country: None (occurrence: None)
  Receive Date: 20120626
  Receipt Date: 20120619
  Transmission Date: 20120825
  Serious: Yes (Hospitalization)
  Sender: FDA-Public Use
  Company Number: US-JNJFOC-20120609872

PATIENT
  Age: 60 Year
  Sex: Male

DRUGS (2)
  1. PLAVIX [Concomitant]
     Indication: ATRIAL FIBRILLATION
     Route: 048
  2. XARELTO [Suspect]
     Indication: ATRIAL FIBRILLATION
     Route: 048

REACTIONS (2)
  - FALL [None]
  - HAEMORRHAGE INTRACRANIAL [None]
